FAERS Safety Report 9214915 (Version 4)
Quarter: 2013Q3

REPORT INFORMATION
  Report Type: Spontaneous
  Country: US (occurrence: US)
  Receive Date: 20130405
  Receipt Date: 20130821
  Transmission Date: 20140515
  Serious: Yes (Hospitalization, Other)
  Sender: FDA-Public Use
  Company Number: US-CELGENEUS-163-20785-13032330

PATIENT
  Age: 43 Year
  Sex: Female

DRUGS (30)
  1. THALOMID [Suspect]
     Indication: ANGIOSARCOMA
     Dosage: 300 MILLIGRAM
     Route: 048
     Dates: start: 20120621, end: 20130206
  2. THALOMID [Suspect]
     Dosage: 300 MILLIGRAM
     Route: 048
     Dates: start: 20130227
  3. ASPIRIN [Concomitant]
     Indication: PAIN
     Dosage: 325 MILLIGRAM
     Route: 065
  4. ASPIRIN [Concomitant]
     Indication: THROMBOSIS PROPHYLAXIS
     Dosage: 81 MILLIGRAM
     Route: 065
  5. MORPHINE SULFATE [Concomitant]
     Indication: PAIN
     Dosage: 30-60 MG
     Route: 065
  6. OXYCODONE [Concomitant]
     Indication: PAIN
     Route: 048
  7. FUROSEMIDE [Concomitant]
     Indication: OEDEMA
     Dosage: 20 MILLIGRAM
     Route: 048
  8. KLOR-CON [Concomitant]
     Indication: MINERAL SUPPLEMENTATION
     Dosage: 10 MILLIGRAM
     Route: 065
  9. MIRTAZAPINE [Concomitant]
     Indication: DEPRESSION
     Dosage: 30 MILLIGRAM
     Route: 048
  10. MIRTAZAPINE [Concomitant]
     Dosage: 15 MILLIGRAM
     Route: 065
  11. CLONAZEPAM [Concomitant]
     Indication: ANXIETY
     Dosage: 3 MILLIGRAM
     Route: 048
  12. AMITRIPTYLINE [Concomitant]
     Indication: INSOMNIA
     Dosage: 100 MILLIGRAM
     Route: 048
  13. CEFAZOLIN [Concomitant]
     Indication: PRODUCT USED FOR UNKNOWN INDICATION
     Route: 041
  14. NICOTINE [Concomitant]
     Indication: PRODUCT USED FOR UNKNOWN INDICATION
     Dosage: 21 MILLIGRAM
     Route: 065
  15. POTASSIUM CHLORIDE [Concomitant]
     Indication: PRODUCT USED FOR UNKNOWN INDICATION
     Dosage: 10 MILLIEQUIVALENTS
     Route: 065
  16. SERTRALINE [Concomitant]
     Indication: PRODUCT USED FOR UNKNOWN INDICATION
     Dosage: 150 MILLIGRAM
     Route: 048
  17. SODIUM CHLORIDE [Concomitant]
     Indication: PRODUCT USED FOR UNKNOWN INDICATION
     Dosage: 0.9% 3-20 ML
     Route: 065
  18. SODIUM PHOSPHATE / POTASSIUM PHOSPHATE [Concomitant]
     Indication: PRODUCT USED FOR UNKNOWN INDICATION
     Dosage: 2 TABLET
     Route: 065
  19. BISACODYL [Concomitant]
     Indication: PRODUCT USED FOR UNKNOWN INDICATION
     Dosage: 20 MILLIGRAM
     Route: 065
  20. DOCUSATE SODIUM [Concomitant]
     Indication: PRODUCT USED FOR UNKNOWN INDICATION
     Dosage: 100 MILLIGRAM
     Route: 065
  21. ONDANSETRON [Concomitant]
     Indication: PRODUCT USED FOR UNKNOWN INDICATION
     Route: 065
  22. LORAZEPAM [Concomitant]
     Indication: PRODUCT USED FOR UNKNOWN INDICATION
     Route: 065
  23. MAGNESIUM SULFATE [Concomitant]
     Indication: PRODUCT USED FOR UNKNOWN INDICATION
     Route: 041
  24. VANCOMYCIN [Concomitant]
     Indication: PRODUCT USED FOR UNKNOWN INDICATION
     Route: 065
  25. COLON CLEANSER [Concomitant]
     Indication: CONSTIPATION
     Dosage: 1 CAPSULE
     Route: 065
  26. ZOLPIDEM [Concomitant]
     Indication: INSOMNIA
     Dosage: 10 MILLIGRAM
     Route: 048
  27. DOBUTAMINE [Concomitant]
     Indication: PRODUCT USED FOR UNKNOWN INDICATION
     Route: 065
  28. NICARDIPINE [Concomitant]
     Indication: PRODUCT USED FOR UNKNOWN INDICATION
     Route: 065
  29. DEXMEDETOMIDINE [Concomitant]
     Indication: PRODUCT USED FOR UNKNOWN INDICATION
     Route: 065
  30. FENTANYL [Concomitant]
     Indication: PRODUCT USED FOR UNKNOWN INDICATION
     Route: 065

REACTIONS (4)
  - Hepatitis acute [Recovered/Resolved]
  - Mental status changes [Unknown]
  - Cardiac myxoma [Recovered/Resolved]
  - Thrombocytopenia [Recovered/Resolved]
